FAERS Safety Report 5374093-1 (Version None)
Quarter: 2007Q2

REPORT INFORMATION
  Report Type: 
  Country: None (occurrence: None)
  Receive Date: 20070627
  Receipt Date: 20070606
  Transmission Date: 20071010
  Serious: Yes (Hospitalization)
  Sender: FDA-Public Use
  Company Number: 070503504

PATIENT
  Age: 60 Year
  Sex: Male
  Weight: 79.3795 kg

DRUGS (5)
  1. MUCINEX DM [Suspect]
     Indication: RESPIRATORY TRACT CONGESTION
     Dosage: 1 TABL, ONCE, ORAL
     Route: 048
     Dates: start: 20070313, end: 20070313
  2. ZOCOR [Concomitant]
  3. ASPIRIN ^BAYER^ (CACETYLSALCYLIC ACID) [Concomitant]
  4. PLAVIX [Concomitant]
  5. LISINOPRIL [Concomitant]

REACTIONS (4)
  - LOSS OF CONSCIOUSNESS [None]
  - NAUSEA [None]
  - ORTHOSTATIC HYPOTENSION [None]
  - SYNCOPE [None]
